FAERS Safety Report 15723529 (Version 1)
Quarter: 2018Q4

REPORT INFORMATION
  Report Type: Spontaneous
  Country: US (occurrence: US)
  Receive Date: 20181214
  Receipt Date: 20181214
  Transmission Date: 20190205
  Serious: No
  Sender: FDA-Public Use
  Company Number: US-SA-2014SA096815

PATIENT
  Age: 49 Year
  Sex: Male

DRUGS (3)
  1. CORTIZONE 10 [Suspect]
     Active Substance: HYDROCORTISONE
     Indication: ECZEMA
     Dosage: 2 DF,UNK
     Route: 065
     Dates: start: 20160303
  2. CORTIZONE 10 [Suspect]
     Active Substance: HYDROCORTISONE
     Dosage: 2 DF,UNK
     Route: 065
     Dates: start: 20160303
  3. CORTIZONE 10 [Suspect]
     Active Substance: HYDROCORTISONE
     Dosage: 2 DF,UNK
     Route: 065
     Dates: start: 20160303

REACTIONS (3)
  - Rash [Unknown]
  - Drug ineffective [Unknown]
  - Product packaging issue [Unknown]

NARRATIVE: CASE EVENT DATE: 20160303
